FAERS Safety Report 9800840 (Version 3)
Quarter: 2014Q1

REPORT INFORMATION
  Report Type: Spontaneous
  Country: AU (occurrence: AU)
  Receive Date: 20140107
  Receipt Date: 20140128
  Transmission Date: 20141002
  Serious: Yes (Hospitalization)
  Sender: FDA-Public Use
  Company Number: AU-JNJFOC-20140101824

PATIENT
  Age: 82 Year
  Sex: Male

DRUGS (9)
  1. XARELTO [Suspect]
     Indication: CEREBROVASCULAR ACCIDENT PROPHYLAXIS
     Route: 048
     Dates: start: 20131219, end: 20131226
  2. XARELTO [Suspect]
     Indication: ATRIAL FIBRILLATION
     Route: 048
     Dates: start: 20131219, end: 20131226
  3. NOTEN [Concomitant]
     Route: 065
  4. GOPTEN [Concomitant]
     Route: 065
  5. PRAVASTATIN [Concomitant]
     Route: 065
  6. BROMOCRIPTINE [Concomitant]
     Dosage: ONE BEFORE BED
     Route: 065
  7. SOMAC [Concomitant]
     Route: 065
  8. DUODART [Concomitant]
     Dosage: ONE CAPSULE BEFORE BED
     Route: 065
  9. PRADAXA [Concomitant]
     Dosage: ONE IN THE MORNING AND ONE BEFORE BED
     Route: 065

REACTIONS (2)
  - Vasculitis [Recovering/Resolving]
  - Rash [Recovering/Resolving]
